FAERS Safety Report 20791806 (Version 6)
Quarter: 2024Q2

REPORT INFORMATION
  Report Type: Spontaneous
  Country: US (occurrence: US)
  Receive Date: 20220505
  Receipt Date: 20240429
  Transmission Date: 20240716
  Serious: Yes (Other)
  Sender: FDA-Public Use
  Company Number: US-PFIZER INC-202200661860

PATIENT
  Age: 83 Year
  Sex: Female

DRUGS (3)
  1. XELJANZ XR [Suspect]
     Active Substance: TOFACITINIB CITRATE
     Dosage: 11 MG
     Route: 048
  2. TYLENOL [Concomitant]
     Active Substance: ACETAMINOPHEN
  3. BIOTIN [Concomitant]
     Active Substance: BIOTIN

REACTIONS (5)
  - Leukaemia [Unknown]
  - Lung disorder [Unknown]
  - Illness [Unknown]
  - Peripheral swelling [Unknown]
  - Amnesia [Unknown]
